FAERS Safety Report 4406079-5 (Version None)
Quarter: 2004Q3

REPORT INFORMATION
  Report Type: 
  Country: None (occurrence: None)
  Receive Date: 20040723
  Receipt Date: 20040413
  Transmission Date: 20050211
  Serious: No
  Sender: FDA-Public Use
  Company Number: US-GLAXOSMITHKLINE-A0506953A

PATIENT
  Age: 72 Year
  Sex: Female

DRUGS (10)
  1. AVANDIA [Suspect]
     Dosage: 4MG PER DAY
     Route: 048
  2. GLUCOTROL [Concomitant]
  3. ACCUPRIL [Concomitant]
  4. TRIAMTERENE [Concomitant]
  5. ALBUTEROL [Concomitant]
  6. MUCOMYST [Concomitant]
  7. IPRATROPIUM BROMIDE [Concomitant]
  8. OXYGEN [Concomitant]
  9. POTASSIUM CHLORIDE [Concomitant]
  10. ALBUTEROL [Concomitant]

REACTIONS (2)
  - BACK PAIN [None]
  - FEELING ABNORMAL [None]
